FAERS Safety Report 8423477-3 (Version None)
Quarter: 2012Q2

REPORT INFORMATION
  Report Type: 
  Country: None (occurrence: None)
  Receive Date: 20120608
  Receipt Date: 20120601
  Transmission Date: 20120825
  Serious: Yes (Hospitalization)
  Sender: FDA-Public Use
  Company Number: FI-B.I. PHARMACEUTICALS,INC./RIDGEFIELD-2012-SW-00454SF

PATIENT
  Age: 80 Year
  Sex: Male

DRUGS (1)
  1. PRADAXA [Suspect]
     Dosage: 220 MG
     Dates: start: 20120518, end: 20120527

REACTIONS (3)
  - CONTUSION [None]
  - OEDEMA PERIPHERAL [None]
  - HAEMORRHAGE [None]
